FAERS Safety Report 21410503 (Version 1)
Quarter: 2022Q4

REPORT INFORMATION
  Report Type: Spontaneous
  Country: US (occurrence: None)
  Receive Date: 20221003
  Receipt Date: 20221003
  Transmission Date: 20230113
  Serious: No
  Sender: FDA-Public Use
  Company Number: None

PATIENT
  Sex: Male
  Weight: 91.63 kg

DRUGS (18)
  1. INLYTA [Suspect]
     Active Substance: AXITINIB
     Indication: Renal cancer
     Dosage: 5MG TWICE DAILY ORAL?
     Route: 048
  2. Azelastine and Fluticasone [Concomitant]
  3. BUDESONIDE [Concomitant]
     Active Substance: BUDESONIDE
  4. BYSTOLIC [Concomitant]
     Active Substance: NEBIVOLOL HYDROCHLORIDE
  5. ESOMEPRAZOLE [Concomitant]
     Active Substance: ESOMEPRAZOLE
  6. FINASTERIDE [Concomitant]
     Active Substance: FINASTERIDE
  7. FLUTICASONE [Concomitant]
     Active Substance: FLUTICASONE
  8. LEVALBUTEROL [Concomitant]
     Active Substance: LEVALBUTEROL
  9. MENTHOL [Concomitant]
     Active Substance: MENTHOL
  10. Multivitamins/Minerals (with ADEK, Folate, Iron) [Concomitant]
  11. OXYCODONE [Concomitant]
     Active Substance: OXYCODONE
  12. Oyster Shell Calcium + D [Concomitant]
  13. RELISTOR [Concomitant]
     Active Substance: METHYLNALTREXONE BROMIDE
  14. SIMVASTATIN [Concomitant]
     Active Substance: SIMVASTATIN
  15. TAMSULOSIN [Concomitant]
     Active Substance: TAMSULOSIN
  16. Vitamin B Complex Combinations [Concomitant]
  17. VITAMIN D3 [Concomitant]
     Active Substance: CHOLECALCIFEROL
  18. ZYRTEC [Concomitant]
     Active Substance: CETIRIZINE HYDROCHLORIDE

REACTIONS (3)
  - White blood cell count decreased [None]
  - Myalgia [None]
  - Joint stiffness [None]
